FAERS Safety Report 13272509 (Version 9)
Quarter: 2017Q3

REPORT INFORMATION
  Report Type: Spontaneous
  Country: US (occurrence: US)
  Receive Date: 20170227
  Receipt Date: 20170907
  Transmission Date: 20171127
  Serious: Yes (Congenital Anomaly, Other)
  Sender: FDA-Public Use
  Company Number: PHEH2017US005812

PATIENT
  Sex: Female

DRUGS (2)
  1. ONDANSETRON [Suspect]
     Active Substance: ONDANSETRON
     Indication: FOETAL EXPOSURE DURING PREGNANCY
     Dosage: MOTHER^S DOSE: 04 MG, PRN
     Route: 064
  2. ZOFRAN [Suspect]
     Active Substance: ONDANSETRON HYDROCHLORIDE
     Indication: FOETAL EXPOSURE DURING PREGNANCY
     Dosage: MOTHER DOSE: 04 MG, Q6H
     Route: 064

REACTIONS (35)
  - Congenital cystic lung [Unknown]
  - Heart disease congenital [Unknown]
  - Poor feeding infant [Unknown]
  - Dyspnoea [Unknown]
  - Neonatal respiratory distress syndrome [Recovered/Resolved]
  - Foetal exposure during pregnancy [Unknown]
  - Dermatitis diaper [Unknown]
  - Constipation [Unknown]
  - Pulmonary sequestration [Unknown]
  - Pulmonary artery stenosis congenital [Unknown]
  - Atelectasis neonatal [Unknown]
  - Upper respiratory tract infection [Unknown]
  - Left-to-right cardiac shunt [Unknown]
  - Macrocephaly [Unknown]
  - Infantile apnoea [Unknown]
  - Bradycardia neonatal [Unknown]
  - Cardiac murmur [Unknown]
  - Skin abrasion [Unknown]
  - Pyrexia [Unknown]
  - Atrial septal defect [Unknown]
  - Congenital diaphragmatic eventration [Unknown]
  - Hyperbilirubinaemia neonatal [Recovered/Resolved]
  - Gastrooesophageal reflux disease [Unknown]
  - Diaphragmatic hernia [Unknown]
  - Low birth weight baby [Unknown]
  - Injury [Unknown]
  - Sinusitis [Unknown]
  - Eye discharge [Unknown]
  - Dacryostenosis congenital [Unknown]
  - Neonatal tachypnoea [Unknown]
  - Gross motor delay [Unknown]
  - Premature baby [Unknown]
  - Cyanosis neonatal [Unknown]
  - Hypermetropia [Unknown]
  - Arthropod bite [Unknown]
